FAERS Safety Report 18490503 (Version 1)
Quarter: 2020Q4

REPORT INFORMATION
  Report Type: Spontaneous
  Country: US (occurrence: US)
  Receive Date: 20201111
  Receipt Date: 20201111
  Transmission Date: 20210114
  Serious: Yes (Hospitalization, Other)
  Sender: FDA-Public Use
  Company Number: US-UPSHER-SMITH LABORATORIES, LLC-2020USL00585

PATIENT
  Age: 46 Year
  Sex: Female
  Weight: 72.56 kg

DRUGS (20)
  1. TOPIRAMATE IMMEDIATE RELEASE [Suspect]
     Active Substance: TOPIRAMATE
     Indication: ESSENTIAL TREMOR
     Dosage: 25 MG
     Dates: start: 2017, end: 2017
  2. TOPIRAMATE IMMEDIATE RELEASE [Suspect]
     Active Substance: TOPIRAMATE
     Dosage: 100 MG
     Dates: start: 2017, end: 2017
  3. METHADONE [Suspect]
     Active Substance: METHADONE HYDROCHLORIDE
     Dosage: UNK (DOSE INCREASE)
     Dates: start: 201908
  4. PROPRANOLOL ER (EXTENDED RELEASE) [Concomitant]
  5. METHADONE [Suspect]
     Active Substance: METHADONE HYDROCHLORIDE
     Dosage: 5 MG OR 7 MG
  6. METHADONE [Suspect]
     Active Substance: METHADONE HYDROCHLORIDE
     Dosage: 15 MG
     Dates: start: 2019, end: 201908
  7. TOPIRAMATE IMMEDIATE RELEASE [Suspect]
     Active Substance: TOPIRAMATE
     Dosage: 75 MG
     Dates: start: 2017, end: 2017
  8. TOPIRAMATE IMMEDIATE RELEASE [Suspect]
     Active Substance: TOPIRAMATE
     Dosage: UNK, 2X/DAY (MORNING AND EVENING)
  9. METHADONE [Suspect]
     Active Substance: METHADONE HYDROCHLORIDE
     Dosage: 25 MG
     Dates: start: 2020
  10. GABAPENTIN. [Concomitant]
     Active Substance: GABAPENTIN
  11. CYMBALTA [Concomitant]
     Active Substance: DULOXETINE HYDROCHLORIDE
  12. METHADONE [Suspect]
     Active Substance: METHADONE HYDROCHLORIDE
     Dosage: 20 MG
  13. QUDEXY XR [Suspect]
     Active Substance: TOPIRAMATE
     Indication: ESSENTIAL TREMOR
     Dosage: 200 MG, 1X/DAY
     Dates: start: 20200305
  14. TOPIRAMATE IMMEDIATE RELEASE [Suspect]
     Active Substance: TOPIRAMATE
     Dosage: 200 MG
     Dates: start: 2017
  15. TOPIRAMATE IMMEDIATE RELEASE [Suspect]
     Active Substance: TOPIRAMATE
     Dosage: 50 MG
     Dates: start: 2017, end: 2017
  16. TOPIRAMATE IMMEDIATE RELEASE [Suspect]
     Active Substance: TOPIRAMATE
     Dosage: 100 MG
     Dates: start: 2017, end: 2017
  17. METHADONE [Suspect]
     Active Substance: METHADONE HYDROCHLORIDE
     Indication: PAIN
     Dosage: 2.5 MG, 2X/DAY
     Dates: start: 20170925
  18. QUDEXY XR [Suspect]
     Active Substance: TOPIRAMATE
     Indication: NEUROPATHY PERIPHERAL
  19. METHADONE [Suspect]
     Active Substance: METHADONE HYDROCHLORIDE
     Dosage: 10 MG
     Dates: end: 201904
  20. METHADONE [Suspect]
     Active Substance: METHADONE HYDROCHLORIDE
     Dosage: 20 MG
     Dates: start: 201904, end: 2019

REACTIONS (24)
  - Spinal stenosis [Unknown]
  - Anorectal sensory loss [Unknown]
  - Sensory loss [Not Recovered/Not Resolved]
  - Drug interaction [Not Recovered/Not Resolved]
  - Paraesthesia [Not Recovered/Not Resolved]
  - Back disorder [Unknown]
  - Neuropathy peripheral [Not Recovered/Not Resolved]
  - Anal incontinence [Unknown]
  - Visual impairment [Not Recovered/Not Resolved]
  - Fatigue [Unknown]
  - Hypoaesthesia [Recovered/Resolved]
  - Sexual dysfunction [Unknown]
  - Therapeutic product effect prolonged [Not Recovered/Not Resolved]
  - Pain [Not Recovered/Not Resolved]
  - Vision blurred [Not Recovered/Not Resolved]
  - Amnesia [Not Recovered/Not Resolved]
  - Thinking abnormal [Not Recovered/Not Resolved]
  - Therapeutic response unexpected [Not Recovered/Not Resolved]
  - Swelling [Unknown]
  - Procedural pain [Recovering/Resolving]
  - Aphasia [Not Recovered/Not Resolved]
  - Nerve injury [Not Recovered/Not Resolved]
  - Feeling abnormal [Not Recovered/Not Resolved]
  - Confusional state [Not Recovered/Not Resolved]

NARRATIVE: CASE EVENT DATE: 2020
